FAERS Safety Report 5565307-3 (Version None)
Quarter: 2007Q4

REPORT INFORMATION
  Report Type: 
  Country: None (occurrence: None)
  Receive Date: 20071218
  Receipt Date: 20030125
  Transmission Date: 20080405
  Serious: Yes (Death, Other)
  Sender: FDA-Public Use
  Company Number: JP-ROCHE-330249

PATIENT
  Age: 83 Year
  Sex: Male

DRUGS (3)
  1. TAMIFLU [Suspect]
     Route: 048
     Dates: start: 20030114, end: 20030116
  2. FRANDOL [Concomitant]
     Indication: MYOCARDIAL ISCHAEMIA
     Dosage: FORMULATION REPORTED AS TAPE.
     Route: 062
     Dates: start: 20021125, end: 20030115
  3. VOLTAREN [Concomitant]
     Route: 054
     Dates: start: 20030113, end: 20030113

REACTIONS (2)
  - LEUKOPENIA [None]
  - PNEUMONIA INFLUENZAL [None]
